FAERS Safety Report 15993721 (Version 1)
Quarter: 2019Q1

REPORT INFORMATION
  Report Type: Spontaneous
  Country: FR (occurrence: FR)
  Receive Date: 20190222
  Receipt Date: 20190222
  Transmission Date: 20190418
  Serious: Yes (Hospitalization)
  Sender: FDA-Public Use
  Company Number: FR-SA-2014SA066755

PATIENT
  Age: 74 Year
  Sex: Female

DRUGS (31)
  1. TARGOCID [Concomitant]
     Active Substance: TEICOPLANIN
     Dosage: UNK
     Dates: start: 20140411, end: 20140414
  2. CIPROFLOXACIN. [Concomitant]
     Active Substance: CIPROFLOXACIN
     Dosage: UNK
     Dates: start: 20140407, end: 20140415
  3. LORATADINE. [Concomitant]
     Active Substance: LORATADINE
     Dosage: UNK
     Dates: start: 20140408, end: 20140413
  4. TRANXENE [Concomitant]
     Active Substance: CLORAZEPATE DIPOTASSIUM
     Dosage: UNK
     Dates: end: 20140414
  5. STILNOX [Suspect]
     Active Substance: ZOLPIDEM TARTRATE
     Indication: INSOMNIA
     Dosage: UNK UNK,UNK
     Route: 048
     Dates: start: 20140423, end: 20140506
  6. OXAZEPAM. [Suspect]
     Active Substance: OXAZEPAM
     Dosage: UNK UNK,UNK
     Route: 048
     Dates: start: 20140421, end: 20140506
  7. KARDEGIC [Concomitant]
     Active Substance: ASPIRIN DL-LYSINE
     Dosage: UNK
     Dates: start: 20140321, end: 20140402
  8. KAYEXALATE [Concomitant]
     Active Substance: SODIUM POLYSTYRENE SULFONATE
     Dosage: UNK
     Dates: start: 20140430, end: 20140501
  9. LEDERFOLINE [Concomitant]
     Active Substance: LEUCOVORIN CALCIUM
     Dosage: UNK
     Dates: start: 20140405
  10. TAHOR [Concomitant]
     Active Substance: ATORVASTATIN CALCIUM
     Dosage: UNK
     Dates: start: 20140321, end: 20140325
  11. MORPHINE [Concomitant]
     Active Substance: MORPHINE
     Dosage: UNK
     Dates: start: 20140407, end: 20140415
  12. ARACYTINE [Concomitant]
     Active Substance: CYTARABINE
     Indication: ACUTE MYELOID LEUKAEMIA
     Dosage: 1 DF, UNK
     Route: 065
     Dates: start: 20140325, end: 20140325
  13. SMECTA [Concomitant]
     Active Substance: MONTMORILLONITE
     Dosage: UNK
     Dates: start: 20140411, end: 20140415
  14. AMIKACIN. [Concomitant]
     Active Substance: AMIKACIN
     Dosage: UNK
     Dates: start: 20140402, end: 20140408
  15. IMIPENEM [Concomitant]
     Active Substance: IMIPENEM
     Dosage: UNK
     Dates: start: 20140402, end: 20140408
  16. VANCOMYCIN HYDROCHLORIDE. [Concomitant]
     Active Substance: VANCOMYCIN HYDROCHLORIDE
     Dosage: UNK
     Dates: start: 20140402, end: 20140409
  17. NOVORAPID [Concomitant]
     Active Substance: INSULIN ASPART
     Dosage: UNK
     Dates: start: 20140501
  18. HALOPERIDOL. [Concomitant]
     Active Substance: HALOPERIDOL
     Dosage: UNK
     Dates: start: 20140411, end: 20140425
  19. IDARUBICIN [Concomitant]
     Active Substance: IDARUBICIN
     Indication: ACUTE MYELOID LEUKAEMIA
     Dosage: 1 DF,UNK
     Dates: start: 20140325, end: 20140325
  20. MOVICOL [Concomitant]
     Active Substance: POLYETHYLENE GLYCOL 3350\POTASSIUM CHLORIDE\SODIUM BICARBONATE\SODIUM CHLORIDE
     Dosage: UNK
     Dates: start: 20140417
  21. TOPALGIC [TRAMADOL HYDROCHLORIDE] [Concomitant]
     Active Substance: TRAMADOL HYDROCHLORIDE
     Dosage: UNK
     Dates: start: 20140321
  22. PRIMPERAN [Concomitant]
     Active Substance: METOCLOPRAMIDE HYDROCHLORIDE
     Dosage: UNK
     Dates: start: 20140417, end: 20140425
  23. HYDROXYZINE [Concomitant]
     Active Substance: HYDROXYZINE HYDROCHLORIDE
     Dosage: UNK
     Dates: start: 20140410, end: 20140413
  24. GLICLAZIDE [Suspect]
     Active Substance: GLICLAZIDE
     Indication: DIABETES MELLITUS
     Dosage: UNK UNK,UNK
     Route: 048
     Dates: start: 20140421, end: 20140506
  25. TIORFAN [Concomitant]
     Active Substance: RACECADOTRIL
     Dosage: UNK
     Dates: start: 20140331, end: 20140414
  26. NIVESTIM [Concomitant]
     Active Substance: FILGRASTIM
     Dosage: UNK
     Dates: start: 20140402, end: 20140415
  27. CANCIDAS [Concomitant]
     Active Substance: CASPOFUNGIN ACETATE
     Dosage: UNK
     Dates: start: 20140331, end: 20140415
  28. TAZOBACTAM [Concomitant]
     Active Substance: TAZOBACTAM
     Dosage: UNK
     Dates: start: 20140328, end: 20140402
  29. ONDANSETRON [Concomitant]
     Active Substance: ONDANSETRON
     Dosage: UNK
     Dates: start: 20140325, end: 20140401
  30. ALLOPURINOL. [Concomitant]
     Active Substance: ALLOPURINOL
     Dosage: UNK
     Dates: start: 20140321, end: 20140322
  31. ATENOLOL. [Concomitant]
     Active Substance: ATENOLOL
     Dosage: UNK
     Dates: start: 20140321

REACTIONS (1)
  - Rash maculo-papular [Recovering/Resolving]

NARRATIVE: CASE EVENT DATE: 20140502
